FAERS Safety Report 18456161 (Version 1)
Quarter: 2020Q4

REPORT INFORMATION
  Report Type: Other
  Country: US (occurrence: US)
  Receive Date: 20201103
  Receipt Date: 20201103
  Transmission Date: 20210114
  Serious: Yes (Other)
  Sender: FDA-Public Use
  Company Number: US-ROCHE-2703756

PATIENT
  Age: 73 Year
  Sex: Female
  Weight: 99.43 kg

DRUGS (29)
  1. ACTEMRA [Suspect]
     Active Substance: TOCILIZUMAB
  2. ACTEMRA [Suspect]
     Active Substance: TOCILIZUMAB
  3. ACTEMRA [Suspect]
     Active Substance: TOCILIZUMAB
     Indication: RHEUMATOID ARTHRITIS
  4. TYLENOL WITH CODEINE [Concomitant]
     Active Substance: ACETAMINOPHEN\CODEINE PHOSPHATE
     Dosage: TAKE 2 TABS ORALLY EVERY 6 HOURS
     Route: 048
  5. METANX [Concomitant]
     Active Substance: LEVOMEFOLATE CALCIUM\METHYLCOBALAMIN\PYRIDOXAL PHOSPHATE ANHYDROUS
  6. ACTEMRA [Suspect]
     Active Substance: TOCILIZUMAB
  7. ACTEMRA [Suspect]
     Active Substance: TOCILIZUMAB
     Indication: RHEUMATOID ARTHRITIS
  8. RITUXAN [Suspect]
     Active Substance: RITUXIMAB
     Indication: PRODUCT USED FOR UNKNOWN INDICATION
     Route: 065
  9. LEVOTHYROXINE. [Concomitant]
     Active Substance: LEVOTHYROXINE
     Route: 048
  10. METFORMIN [Concomitant]
     Active Substance: METFORMIN HYDROCHLORIDE
  11. ASPIRIN. [Concomitant]
     Active Substance: ASPIRIN
     Route: 048
  12. LISINOPRIL. [Concomitant]
     Active Substance: LISINOPRIL
     Route: 048
  13. ACTEMRA [Suspect]
     Active Substance: TOCILIZUMAB
     Indication: RHEUMATOID ARTHRITIS
     Dosage: INJECT 162MG SUBCUTANEOUSLY EVERY WEEK
     Route: 058
  14. COUMADIN [Concomitant]
     Active Substance: WARFARIN SODIUM
  15. ACETAMINOPHEN;CODEINE [Concomitant]
     Active Substance: ACETAMINOPHEN\CODEINE PHOSPHATE
     Route: 048
  16. ACTEMRA [Suspect]
     Active Substance: TOCILIZUMAB
  17. ACTEMRA [Suspect]
     Active Substance: TOCILIZUMAB
     Indication: RHEUMATOID ARTHRITIS
     Dosage: INJECT 0.9ML EVERY WEEK BY SUBCUTANEOUS ROUTE
     Route: 058
  18. ACTEMRA [Suspect]
     Active Substance: TOCILIZUMAB
  19. VENLAFAXINE [Concomitant]
     Active Substance: VENLAFAXINE HYDROCHLORIDE
  20. DILTIAZEM. [Concomitant]
     Active Substance: DILTIAZEM
     Route: 048
  21. CHLORTHALIDONE. [Concomitant]
     Active Substance: CHLORTHALIDONE
  22. CARVEDILOL. [Concomitant]
     Active Substance: CARVEDILOL
     Route: 048
  23. ACTEMRA [Suspect]
     Active Substance: TOCILIZUMAB
  24. METHOTREXATE. [Concomitant]
     Active Substance: METHOTREXATE
     Route: 030
     Dates: start: 20180425, end: 20180625
  25. PREDNISONE. [Concomitant]
     Active Substance: PREDNISONE
     Route: 048
  26. DEXAMETHASONE. [Concomitant]
     Active Substance: DEXAMETHASONE
  27. DIGOXIN. [Concomitant]
     Active Substance: DIGOXIN
     Route: 048
  28. FOLIC ACID. [Concomitant]
     Active Substance: FOLIC ACID
     Route: 048
  29. METHOTREXATE. [Concomitant]
     Active Substance: METHOTREXATE
     Route: 030
     Dates: start: 20180625

REACTIONS (2)
  - Myocardial infarction [Unknown]
  - Drug ineffective [Unknown]

NARRATIVE: CASE EVENT DATE: 202007
